FAERS Safety Report 11907887 (Version 11)
Quarter: 2016Q4

REPORT INFORMATION
  Report Type: Report from Study
  Country: US (occurrence: US)
  Receive Date: 20160111
  Receipt Date: 20161212
  Transmission Date: 20170206
  Serious: Yes (Hospitalization, Other)
  Sender: FDA-Public Use
  Company Number: US-BAYER-2016-003742

PATIENT
  Age: 81 Year
  Sex: Female

DRUGS (6)
  1. STIVARGA [Suspect]
     Active Substance: REGORAFENIB
     Indication: COLON CANCER
     Dosage: 80 MG, QD (21 DAYS ON 7 DAYS OFF)
     Route: 048
     Dates: start: 20160209
  2. STIVARGA [Suspect]
     Active Substance: REGORAFENIB
     Indication: COLON CANCER
     Dosage: 160 MG, QD
     Route: 048
  3. STIVARGA [Suspect]
     Active Substance: REGORAFENIB
     Indication: COLON CANCER
     Dosage: TOTAL DAILY DOSE 160 MG
     Route: 048
     Dates: start: 20160106
  4. STIVARGA [Suspect]
     Active Substance: REGORAFENIB
     Indication: COLON CANCER
     Dosage: 2 TABLETS (80 MG) ON EVEN DAYS AND 1 TABLET (40 MG) ON ODD DAYS FOR 21 DAYS
     Route: 048
  5. STIVARGA [Suspect]
     Active Substance: REGORAFENIB
     Indication: COLON CANCER
     Dosage: DAILY DOSE 160 MG
     Route: 048
     Dates: start: 20151231
  6. STIVARGA [Suspect]
     Active Substance: REGORAFENIB
     Indication: COLON CANCER
     Dosage: 160 MG, QD
     Route: 048
     Dates: start: 20160102, end: 20160103

REACTIONS (16)
  - Pain in extremity [None]
  - Therapy cessation [None]
  - Cardiac disorder [None]
  - Dyspnoea [None]
  - Pain [None]
  - Cardiac murmur [None]
  - Palmoplantar keratoderma [None]
  - Weight decreased [None]
  - Peripheral coldness [None]
  - Skin discolouration [None]
  - Musculoskeletal disorder [None]
  - Dyspnoea [Recovering/Resolving]
  - Limb discomfort [None]
  - Asthenia [None]
  - Nausea [None]
  - Pain in extremity [Not Recovered/Not Resolved]

NARRATIVE: CASE EVENT DATE: 20160102
